FAERS Safety Report 23964380 (Version 1)
Quarter: 2024Q2

REPORT INFORMATION
  Report Type: Spontaneous
  Country: US (occurrence: None)
  Receive Date: 20240611
  Receipt Date: 20240611
  Transmission Date: 20240716
  Serious: Yes (Life-Threatening, Hospitalization, Disabling)
  Sender: FDA-Public Use
  Company Number: None

PATIENT
  Age: 62 Year
  Sex: Female
  Weight: 109.9 kg

DRUGS (1)
  1. ABATACEPT [Suspect]
     Active Substance: ABATACEPT
     Indication: Rheumatoid arthritis
     Dosage: OTHER FREQUENCY : EVERY 28 DAYS;?
     Route: 042

REACTIONS (4)
  - Meningitis cryptococcal [None]
  - Bacteraemia [None]
  - Acquired immunodeficiency syndrome [None]
  - Encephalopathy [None]

NARRATIVE: CASE EVENT DATE: 20240426
